FAERS Safety Report 4516237-7 (Version None)
Quarter: 2004Q4

REPORT INFORMATION
  Report Type: 
  Country: None (occurrence: None)
  Receive Date: 20041129
  Receipt Date: 20041117
  Transmission Date: 20050328
  Serious: Yes (Other)
  Sender: FDA-Public Use
  Company Number: US-JNJFOC-20041105528

PATIENT
  Age: 20 Year
  Sex: Female

DRUGS (4)
  1. EXTRA STRENGTH TYLENOL [Suspect]
     Indication: DRUG USE FOR UNKNOWN INDICATION
  2. MAGNESIUM (MAGNESIUM) [Concomitant]
  3. COCAINE (COCAINE) [Concomitant]
  4. UNKNOWN MEDICATIONS (ALL OTHER NON-THERAPEUTIC PRODUCTS) [Concomitant]

REACTIONS (6)
  - ASPARTATE AMINOTRANSFERASE INCREASED [None]
  - BLOOD AMYLASE INCREASED [None]
  - DRUG EXPOSURE DURING PREGNANCY [None]
  - INTRA-UTERINE DEATH [None]
  - LIPASE INCREASED [None]
  - VOMITING [None]
